FAERS Safety Report 8461152 (Version 12)
Quarter: 2017Q3

REPORT INFORMATION
  Report Type: Spontaneous
  Country: CA (occurrence: CA)
  Receive Date: 20120315
  Receipt Date: 20170911
  Transmission Date: 20171128
  Serious: Yes (Hospitalization, Other)
  Sender: FDA-Public Use
  Company Number: CA-ROCHE-1048223

PATIENT
  Age: 66 Year
  Sex: Male

DRUGS (8)
  1. XOLAIR [Suspect]
     Active Substance: OMALIZUMAB
     Dosage: UNK
     Route: 058
     Dates: start: 20170727
  2. XOLAIR [Suspect]
     Active Substance: OMALIZUMAB
     Indication: ASTHMA
     Dosage: 225 MG, BIW
     Route: 058
     Dates: start: 20120112
  3. XOLAIR [Suspect]
     Active Substance: OMALIZUMAB
     Dosage: UNK
     Route: 058
     Dates: start: 20160316
  4. XOLAIR [Suspect]
     Active Substance: OMALIZUMAB
     Dosage: 225 MG, EVERY 4 WEEKS
     Route: 058
  5. XOLAIR [Suspect]
     Active Substance: OMALIZUMAB
     Dosage: UNK
     Route: 058
     Dates: start: 20161019
  6. XOLAIR [Suspect]
     Active Substance: OMALIZUMAB
     Dosage: UNK
     Route: 058
     Dates: start: 20161116
  7. XOLAIR [Suspect]
     Active Substance: OMALIZUMAB
     Dosage: UNK
     Route: 058
     Dates: start: 20170111
  8. XOLAIR [Suspect]
     Active Substance: OMALIZUMAB
     Dosage: UNK
     Route: 058
     Dates: start: 20170208

REACTIONS (17)
  - Insomnia [Unknown]
  - Concussion [Unknown]
  - Productive cough [Unknown]
  - Headache [Unknown]
  - Fatigue [Unknown]
  - Loss of consciousness [Unknown]
  - Fall [Unknown]
  - Arthritis [Unknown]
  - Pain in extremity [Unknown]
  - Swelling [Unknown]
  - Dizziness [Recovered/Resolved]
  - Hypotension [Unknown]
  - Dyspnoea [Recovering/Resolving]
  - Hypothermia [Unknown]
  - Contusion [Unknown]
  - Blood pressure increased [Unknown]
  - Asthenia [Unknown]

NARRATIVE: CASE EVENT DATE: 20120225
